FAERS Safety Report 10161632 (Version 1)
Quarter: 2014Q2

REPORT INFORMATION
  Report Type: Report from Study
  Country: US (occurrence: US)
  Receive Date: 20140509
  Receipt Date: 20140509
  Transmission Date: 20141212
  Serious: Yes (Death, Hospitalization)
  Sender: FDA-Public Use
  Company Number: US-ROCHE-1394821

PATIENT
  Age: 71 Year
  Sex: Male

DRUGS (2)
  1. BEVACIZUMAB [Suspect]
     Indication: GLIOBLASTOMA
     Route: 042
     Dates: start: 20140115
  2. BLINDED AMG 386 [Suspect]
     Indication: GLIOBLASTOMA
     Dosage: OVER 30-60 MIN ON DAY 1, 8, 15 AND 22
     Route: 042
     Dates: start: 20140115, end: 20140122

REACTIONS (6)
  - Acute respiratory distress syndrome [Fatal]
  - Renal failure acute [Unknown]
  - Lung infection [Unknown]
  - Influenza like illness [Unknown]
  - Embolism [Unknown]
  - Oedema peripheral [Unknown]
